FAERS Safety Report 5261499-4 (Version None)
Quarter: 2007Q1

REPORT INFORMATION
  Report Type: 
  Country: None (occurrence: None)
  Receive Date: 20070308
  Receipt Date: 20070227
  Transmission Date: 20070707
  Serious: Yes (Hospitalization)
  Sender: FDA-Public Use
  Company Number: 2006SP006880

PATIENT
  Age: 49 Year
  Sex: Male
  Weight: 104.3273 kg

DRUGS (8)
  1. PEG-INTRON [Suspect]
     Indication: HEPATITIS C
     Dosage: SC
     Route: 058
     Dates: start: 20060810, end: 20070112
  2. REBETOL [Suspect]
     Indication: HEPATITIS C
     Dosage: PO
     Route: 048
     Dates: start: 20060810, end: 20070112
  3. ADVAIR DISKUS 100/50 [Concomitant]
  4. ALBUTEROL SULATE [Concomitant]
  5. CAMPRAL [Concomitant]
  6. COMBIVENT [Concomitant]
  7. RANITIDINE HYDROCHLORIDE [Concomitant]
  8. .. [Concomitant]

REACTIONS (11)
  - CEREBROVASCULAR ACCIDENT [None]
  - CHEST PAIN [None]
  - CLAUSTROPHOBIA [None]
  - DYSPHAGIA [None]
  - DYSPNOEA [None]
  - HAEMOGLOBIN DECREASED [None]
  - INFLUENZA LIKE ILLNESS [None]
  - PHARYNGOLARYNGEAL PAIN [None]
  - RECTAL HAEMORRHAGE [None]
  - TONGUE DISORDER [None]
  - WEIGHT DECREASED [None]
